FAERS Safety Report 14751158 (Version 2)
Quarter: 2018Q2

REPORT INFORMATION
  Report Type: Spontaneous
  Country: US (occurrence: US)
  Receive Date: 20180412
  Receipt Date: 20180509
  Transmission Date: 20180711
  Serious: No
  Sender: FDA-Public Use
  Company Number: US-MYLANLABS-2018M1020247

PATIENT
  Age: 27 Year
  Sex: Female

DRUGS (5)
  1. VANCOMYCIN [Suspect]
     Active Substance: VANCOMYCIN
     Indication: STAPHYLOCOCCAL INFECTION
     Dosage: 1000MG EVERY 8 HOURS
     Route: 042
  2. VANCOMYCIN [Suspect]
     Active Substance: VANCOMYCIN
     Dosage: 1000MG EVERY 6 HOURS
     Route: 042
  3. DAPTOMYCIN. [Suspect]
     Active Substance: DAPTOMYCIN
     Indication: STAPHYLOCOCCAL INFECTION
     Dosage: 10 MG/KG/DAY
     Route: 065
  4. DALBAVANCIN. [Suspect]
     Active Substance: DALBAVANCIN
     Indication: STAPHYLOCOCCAL INFECTION
     Dosage: 1000MG LOADING DOSE AND SUBSEQUENT DOSES OF 500MG ON THREE DAYS.
     Route: 065
  5. DALBAVANCIN. [Suspect]
     Active Substance: DALBAVANCIN
     Dosage: 500MG ON DAY 34, 46 AND 53
     Route: 065

REACTIONS (3)
  - No adverse event [Unknown]
  - Normal newborn [Recovered/Resolved]
  - Maternal exposure during pregnancy [Recovered/Resolved]
